FAERS Safety Report 10529355 (Version 1)
Quarter: 2014Q4

REPORT INFORMATION
  Report Type: Spontaneous
  Country: US (occurrence: US)
  Receive Date: 20141021
  Receipt Date: 20141021
  Transmission Date: 20150528
  Serious: Yes (Life-Threatening, Hospitalization, Other)
  Sender: FDA-Public Use
  Company Number: US-AMGEN-USASP2014079799

PATIENT
  Age: 57 Year
  Sex: Male

DRUGS (1)
  1. ENBREL [Suspect]
     Active Substance: ETANERCEPT
     Indication: RHEUMATOID ARTHRITIS
     Dosage: 50 MG, QWK
     Route: 065
     Dates: start: 20120419

REACTIONS (4)
  - Hypertension [Unknown]
  - Thinking abnormal [Not Recovered/Not Resolved]
  - Intracranial aneurysm [Recovered/Resolved]
  - Delirium tremens [Recovered/Resolved]

NARRATIVE: CASE EVENT DATE: 2014
